FAERS Safety Report 6209288-8 (Version None)
Quarter: 2009Q2

REPORT INFORMATION
  Report Type: 
  Country: None (occurrence: None)
  Receive Date: 20090529
  Receipt Date: 20090527
  Transmission Date: 20091009
  Serious: Yes (Death, Hospitalization)
  Sender: FDA-Public Use
  Company Number: DE-SANOFI-SYNTHELABO-F01200900463

PATIENT
  Sex: Male
  Weight: 61.6 kg

DRUGS (11)
  1. RAMIPRIL [Concomitant]
     Dosage: UNK
     Route: 065
     Dates: start: 20050101, end: 20090309
  2. LACTULOSE [Concomitant]
     Dosage: UNK
     Route: 065
     Dates: start: 20090204, end: 20090304
  3. METOCLOPRAMIDE HYDROCHLORIDE [Concomitant]
     Dosage: UNK
     Route: 065
     Dates: start: 20090209
  4. ACETYLSALICYLIC ACID SRT [Concomitant]
     Dosage: UNK
     Route: 065
     Dates: start: 20081201
  5. OXYCODONE HYDROCHLORIDE [Concomitant]
     Route: 065
     Dates: start: 20081101
  6. FLUOROURACIL [Suspect]
     Dosage: 400 MG/M2 (TDD 688 MG) EVERY 2 WEEKS, AND THEN 2400 MG/M2 (TDD 4130 MG) EVERY 2 WEEKS
     Route: 040
     Dates: start: 20090309, end: 20090309
  7. FLUOROURACIL [Suspect]
     Dosage: 400 MG/M2 (TDD 688 MG) EVERY 2 WEEKS, AND THEN 2400 MG/M2 (TDD 4130 MG) EVERY 2 WEEKS
     Route: 041
     Dates: start: 20090309, end: 20090309
  8. FOLINIC ACID [Suspect]
     Route: 041
     Dates: start: 20090309, end: 20090309
  9. BEVACIZUMAB [Suspect]
     Route: 041
     Dates: start: 20090309, end: 20090309
  10. OXALIPLATIN [Suspect]
     Indication: COLORECTAL CANCER METASTATIC
     Route: 041
     Dates: start: 20090309, end: 20090309
  11. HYDROCHLOROTHIAZIDE [Concomitant]
     Dosage: UNK
     Route: 065
     Dates: start: 20050101, end: 20090309

REACTIONS (6)
  - CACHEXIA [None]
  - DEHYDRATION [None]
  - LEUKOPENIA [None]
  - NAUSEA [None]
  - REFLUX OESOPHAGITIS [None]
  - VOMITING [None]
